FAERS Safety Report 8061634-9 (Version None)
Quarter: 2012Q1

REPORT INFORMATION
  Report Type: 
  Country: None (occurrence: None)
  Receive Date: 20120123
  Receipt Date: 20120111
  Transmission Date: 20120608
  Serious: Yes (Other)
  Sender: FDA-Public Use
  Company Number: FR-BRISTOL-MYERS SQUIBB COMPANY-16203275

PATIENT
  Age: 60 Year
  Sex: Male

DRUGS (3)
  1. REYATAZ [Suspect]
     Indication: HIV INFECTION
     Route: 048
     Dates: start: 20110708, end: 20110809
  2. NORVIR [Suspect]
     Indication: HIV INFECTION
     Route: 048
     Dates: start: 20110708, end: 20110920
  3. TRUVADA [Suspect]
     Indication: HIV INFECTION
     Dosage: 1DF:1 INTAKE DAILY
     Route: 048
     Dates: start: 20110708, end: 20110920

REACTIONS (11)
  - NAUSEA [None]
  - SLEEP DISORDER [None]
  - OCULAR ICTERUS [None]
  - FLATULENCE [None]
  - ROTATOR CUFF SYNDROME [None]
  - GAMMA-GLUTAMYLTRANSFERASE INCREASED [None]
  - TRANSAMINASES INCREASED [None]
  - BLOOD ALKALINE PHOSPHATASE INCREASED [None]
  - DIZZINESS [None]
  - TENOSYNOVITIS [None]
  - BLOOD BILIRUBIN INCREASED [None]
